FAERS Safety Report 16859807 (Version 1)
Quarter: 2019Q3

REPORT INFORMATION
  Report Type: Other
  Country: NL (occurrence: NL)
  Receive Date: 20190927
  Receipt Date: 20190927
  Transmission Date: 20191005
  Serious: Yes (Death, Life-Threatening, Hospitalization)
  Sender: FDA-Public Use
  Company Number: NL-NOSTRUM LABORATORIES, INC.-2074985

PATIENT
  Age: 72 Year
  Sex: Male

DRUGS (2)
  1. HYDROCHLOROTHIAZIDE. [Interacting]
     Active Substance: HYDROCHLOROTHIAZIDE
     Route: 048
  2. METFORMIN HYDROCHLORIDE EXTENDED-RELEASE [Suspect]
     Active Substance: METFORMIN HYDROCHLORIDE
     Indication: TYPE 2 DIABETES MELLITUS
     Route: 048

REACTIONS (10)
  - Lactic acidosis [Fatal]
  - Tracheostomy [Not Recovered/Not Resolved]
  - Acute kidney injury [Fatal]
  - Haemodynamic instability [Fatal]
  - Sepsis [Fatal]
  - Pneumonia bacterial [Fatal]
  - Respiratory distress [Fatal]
  - Coma [Not Recovered/Not Resolved]
  - Device related infection [Fatal]
  - Ileus [Not Recovered/Not Resolved]
